FAERS Safety Report 6192650-X (Version None)
Quarter: 2009Q2

REPORT INFORMATION
  Report Type: 
  Country: None (occurrence: None)
  Receive Date: 20090514
  Receipt Date: 20090507
  Transmission Date: 20091009
  Serious: Yes (Hospitalization)
  Sender: FDA-Public Use
  Company Number: 2009-01251

PATIENT
  Age: 68 Year
  Sex: Female
  Weight: 98.7 kg

DRUGS (19)
  1. VELCADE [Suspect]
     Indication: MULTIPLE MYELOMA
     Dosage: 1.6 MG/M2,
     Dates: start: 20090123, end: 20090303
  2. CCI-779(TEMSIROLIMUS) INJECTION [Suspect]
     Indication: MULTIPLE MYELOMA
     Dosage: 25 MG,; 15 MG,
     Dates: start: 20090123, end: 20090303
  3. CCI-779(TEMSIROLIMUS) INJECTION [Suspect]
     Indication: MULTIPLE MYELOMA
     Dosage: 25 MG,; 15 MG,
     Dates: start: 20090324, end: 20090324
  4. ASPIRIN [Concomitant]
  5. ATIVAN [Concomitant]
  6. COMPAZINE [Concomitant]
  7. DURAGESIC-100 [Concomitant]
  8. FLUCONAZOLE [Concomitant]
  9. HYDROCHLOROTHIAZIDE [Concomitant]
  10. IMODIUM [Concomitant]
  11. LYRICA [Concomitant]
  12. NORVASC [Concomitant]
  13. OXYCODONE HCL [Concomitant]
  14. PERIDEX (CHLORHEXIDINE GLUCONATE) [Concomitant]
  15. PROTONIX [Concomitant]
  16. TOPROL-XL [Concomitant]
  17. VALTREX [Concomitant]
  18. VASOTEC [Concomitant]
  19. ZOFRAN [Concomitant]

REACTIONS (9)
  - BLOOD CALCIUM DECREASED [None]
  - CLOSTRIDIUM DIFFICILE COLITIS [None]
  - HYPOKALAEMIA [None]
  - HYPOMAGNESAEMIA [None]
  - OEDEMA PERIPHERAL [None]
  - PHLEBITIS SUPERFICIAL [None]
  - RED BLOOD CELL COUNT DECREASED [None]
  - SYNOVIAL CYST [None]
  - WHITE BLOOD CELL COUNT DECREASED [None]
